FAERS Safety Report 20695868 (Version 2)
Quarter: 2022Q2

REPORT INFORMATION
  Report Type: Spontaneous
  Country: US (occurrence: US)
  Receive Date: 20220411
  Receipt Date: 20220421
  Transmission Date: 20220721
  Serious: Yes (Other)
  Sender: FDA-Public Use
  Company Number: US-GLENMARK PHARMACEUTICALS-2022GMK071602

PATIENT

DRUGS (1)
  1. MUPIROCIN [Suspect]
     Active Substance: MUPIROCIN
     Indication: Infection prophylaxis
     Dosage: UNK, BID
     Route: 061
     Dates: start: 2022

REACTIONS (3)
  - Post procedural haemorrhage [Unknown]
  - Application site haemorrhage [Unknown]
  - Product use in unapproved indication [Unknown]
